FAERS Safety Report 24583640 (Version 2)
Quarter: 2024Q4

REPORT INFORMATION
  Report Type: Spontaneous
  Country: JP (occurrence: JP)
  Receive Date: 20241106
  Receipt Date: 20241219
  Transmission Date: 20250114
  Serious: Yes (Hospitalization, Other)
  Sender: ABBVIE
  Company Number: JP-TAKEDA-2024TJP015848

PATIENT
  Age: 80 Year
  Sex: Male

DRUGS (1)
  1. LEUPLIN [Suspect]
     Active Substance: LEUPROLIDE ACETATE
     Indication: Prostate cancer
     Dosage: 22.5 MILLIGRAM, Q6MONTHS?PRO FOR INJECTION KIT 22.5 MG
     Route: 058

REACTIONS (2)
  - Myocardial ischaemia [Recovered/Resolved]
  - Cardiac failure [Recovered/Resolved]
